FAERS Safety Report 4851668-7 (Version None)
Quarter: 2005Q4

REPORT INFORMATION
  Report Type: 
  Country: None (occurrence: None)
  Receive Date: 20051213
  Receipt Date: 20051129
  Transmission Date: 20060501
  Serious: Yes (Hospitalization)
  Sender: FDA-Public Use
  Company Number: PHBS2005SE17492

PATIENT
  Age: 75 Year
  Sex: Male

DRUGS (6)
  1. FOTIL FORTE (NVO) [Suspect]
     Indication: GLAUCOMA
     Dates: end: 20050825
  2. TRAVATAN [Concomitant]
  3. FOLACIN [Concomitant]
     Dosage: 5 MG, UNK
     Route: 048
  4. TROMBYL [Concomitant]
     Dosage: 75 MG, UNK
  5. PERSANTIN [Concomitant]
     Dosage: 200 MG, UNK
  6. AZOPT [Concomitant]

REACTIONS (3)
  - BRADYCARDIA [None]
  - SYNCOPE [None]
  - URINARY INCONTINENCE [None]
